FAERS Safety Report 7501643-9 (Version None)
Quarter: 2011Q2

REPORT INFORMATION
  Report Type: 
  Country: None (occurrence: None)
  Receive Date: 20110524
  Receipt Date: 20100512
  Transmission Date: 20111010
  Serious: No
  Sender: FDA-Public Use
  Company Number: US-MYLANLABS-2010S1008569

PATIENT
  Age: 67 Year
  Sex: Female
  Weight: 59.42 kg

DRUGS (4)
  1. ACEBUTOLOL HCL [Suspect]
     Indication: ARRHYTHMIA
     Route: 048
     Dates: start: 20100401
  2. TIAZAC [Suspect]
     Indication: HYPERTENSION
     Route: 048
     Dates: start: 20100401
  3. KLONOPIN [Suspect]
     Indication: ANXIETY
     Dates: start: 20090301
  4. ACEBUTOLOL HCL [Suspect]
     Indication: HYPERTENSION
     Route: 048
     Dates: start: 20100401

REACTIONS (1)
  - URTICARIA [None]
